FAERS Safety Report 15652026 (Version 4)
Quarter: 2019Q2

REPORT INFORMATION
  Report Type: Spontaneous
  Country: US (occurrence: US)
  Receive Date: 20181123
  Receipt Date: 20190502
  Transmission Date: 20190711
  Serious: Yes (Other)
  Sender: FDA-Public Use
  Company Number: US-ASTRAZENECA-2018SF51946

PATIENT
  Age: 19676 Day
  Sex: Female

DRUGS (35)
  1. PEPCID [Concomitant]
     Active Substance: FAMOTIDINE
     Route: 065
  2. GAVISCON [Concomitant]
     Active Substance: ALUMINUM HYDROXIDE\MAGNESIUM CARBONATE
     Route: 065
  3. AMLODIPINE [Concomitant]
     Active Substance: AMLODIPINE BESYLATE
  4. ONDANSETRON [Concomitant]
     Active Substance: ONDANSETRON
     Dosage: 4.0MG EVERY 8 - 12 HOURS
     Route: 048
  5. ZYRTEC [Concomitant]
     Active Substance: CETIRIZINE HYDROCHLORIDE
     Route: 048
  6. LOSARTAN. [Concomitant]
     Active Substance: LOSARTAN
  7. PREVACID [Suspect]
     Active Substance: LANSOPRAZOLE
     Indication: GASTROOESOPHAGEAL REFLUX DISEASE
     Route: 065
     Dates: start: 2012, end: 2018
  8. LINZESS [Concomitant]
     Active Substance: LINACLOTIDE
     Route: 048
  9. LISINOPRIL. [Concomitant]
     Active Substance: LISINOPRIL
  10. CETRIZINE [Concomitant]
     Active Substance: CETIRIZINE HYDROCHLORIDE
     Dosage: 10MG/G DAILY
     Route: 048
  11. NORVASC [Concomitant]
     Active Substance: AMLODIPINE BESYLATE
     Dosage: 5 MG/DL DAILY
     Route: 048
  12. BENTYL [Concomitant]
     Active Substance: DICYCLOMINE HYDROCHLORIDE
  13. PRILOSEC [Suspect]
     Active Substance: OMEPRAZOLE MAGNESIUM
     Indication: GASTROOESOPHAGEAL REFLUX DISEASE
     Route: 048
     Dates: start: 2012, end: 2018
  14. PROTONIX [Suspect]
     Active Substance: PANTOPRAZOLE SODIUM
     Indication: GASTROOESOPHAGEAL REFLUX DISEASE
     Dosage: GENERIC
     Route: 065
     Dates: start: 2015
  15. ZANTAC [Concomitant]
     Active Substance: RANITIDINE HYDROCHLORIDE
     Route: 065
  16. DIOVAN [Concomitant]
     Active Substance: VALSARTAN
  17. NEXIUM [Suspect]
     Active Substance: ESOMEPRAZOLE MAGNESIUM
     Indication: GASTROOESOPHAGEAL REFLUX DISEASE
     Dosage: GENERIC
     Route: 065
     Dates: start: 2012, end: 2018
  18. TUMS [Concomitant]
     Active Substance: CALCIUM CARBONATE
     Indication: DYSPEPSIA
     Route: 065
  19. TYLENOL [Concomitant]
     Active Substance: ACETAMINOPHEN
     Indication: PAIN
     Route: 065
  20. NOVOLOG [Concomitant]
     Active Substance: INSULIN ASPART
  21. DICYCLOMINE [Concomitant]
     Active Substance: DICYCLOMINE HYDROCHLORIDE
     Dosage: 10 MG/G DAILY
     Route: 048
  22. GABAPENTIN. [Concomitant]
     Active Substance: GABAPENTIN
     Route: 048
     Dates: start: 20140903
  23. NEXIUM [Suspect]
     Active Substance: ESOMEPRAZOLE MAGNESIUM
     Indication: GASTROOESOPHAGEAL REFLUX DISEASE
     Route: 048
     Dates: start: 20151030
  24. NEXIUM [Suspect]
     Active Substance: ESOMEPRAZOLE MAGNESIUM
     Indication: GASTROOESOPHAGEAL REFLUX DISEASE
     Route: 048
     Dates: start: 2011, end: 2015
  25. COREG [Concomitant]
     Active Substance: CARVEDILOL
     Route: 048
  26. PRAVASTATIN. [Concomitant]
     Active Substance: PRAVASTATIN
     Route: 048
  27. PRILOSEC [Suspect]
     Active Substance: OMEPRAZOLE MAGNESIUM
     Indication: GASTROOESOPHAGEAL REFLUX DISEASE
     Dosage: GENERIC
     Route: 048
     Dates: start: 2017, end: 2018
  28. LIPITOR [Concomitant]
     Active Substance: ATORVASTATIN CALCIUM
     Route: 048
     Dates: start: 20150106
  29. NEXIUM [Suspect]
     Active Substance: ESOMEPRAZOLE MAGNESIUM
     Indication: GASTROOESOPHAGEAL REFLUX DISEASE
     Route: 048
     Dates: start: 2012, end: 2018
  30. PREVACID [Suspect]
     Active Substance: LANSOPRAZOLE
     Indication: GASTROOESOPHAGEAL REFLUX DISEASE
     Route: 065
     Dates: start: 2011, end: 2015
  31. RIFAMPIN. [Concomitant]
     Active Substance: RIFAMPIN
     Route: 048
  32. CIPROFLOXACIN. [Concomitant]
     Active Substance: CIPROFLOXACIN
     Dosage: 10MG/G DAILY
     Route: 048
  33. MELOXICAM. [Concomitant]
     Active Substance: MELOXICAM
     Dosage: 10MG/G DAILY
     Route: 048
     Dates: start: 20140903
  34. JANUVIA [Concomitant]
     Active Substance: SITAGLIPTIN PHOSPHATE
     Dosage: 100MG/G DAILY
     Route: 048
  35. ZOFRAN [Concomitant]
     Active Substance: ONDANSETRON HYDROCHLORIDE

REACTIONS (7)
  - Chronic kidney disease [Unknown]
  - End stage renal disease [Unknown]
  - Diabetes mellitus [Unknown]
  - Blood cholesterol increased [Unknown]
  - Renal failure [Not Recovered/Not Resolved]
  - Acute kidney injury [Not Recovered/Not Resolved]
  - Hypertension [Unknown]

NARRATIVE: CASE EVENT DATE: 20141213
